FAERS Safety Report 23926929 (Version 1)
Quarter: 2024Q2

REPORT INFORMATION
  Report Type: Spontaneous
  Country: US (occurrence: US)
  Receive Date: 20240531
  Receipt Date: 20240531
  Transmission Date: 20240716
  Serious: No
  Sender: FDA-Public Use
  Company Number: US-RADIUS HEALTH INC.-2023US006306

PATIENT
  Sex: Female
  Weight: 65.306 kg

DRUGS (1)
  1. TYMLOS [Suspect]
     Active Substance: ABALOPARATIDE
     Indication: Psoriasis
     Dosage: 80 MICROGRAM, QD
     Route: 058

REACTIONS (1)
  - Abdominal discomfort [Unknown]
